FAERS Safety Report 4483507-0 (Version None)
Quarter: 2004Q4

REPORT INFORMATION
  Report Type: 
  Country: None (occurrence: None)
  Receive Date: 20041019
  Receipt Date: 20041019
  Transmission Date: 20050328
  Serious: Yes (Life-Threatening, Hospitalization, Disabling, Other)
  Sender: FDA-Public Use
  Company Number: None

PATIENT
  Age: 54 Year
  Sex: Female
  Weight: 87.0906 kg

DRUGS (1)
  1. BEXTRA [Suspect]
     Indication: MENISCUS LESION
     Dosage: 10 MG ONCE A DAY ORAL
     Route: 048
     Dates: start: 20021004, end: 20021016

REACTIONS (5)
  - ARRHYTHMIA [None]
  - CARDIAC PACEMAKER INSERTION [None]
  - IMPLANTABLE DEFIBRILLATOR INSERTION [None]
  - MYOCARDIAL INFARCTION [None]
  - THROMBOSIS [None]
